FAERS Safety Report 15992139 (Version 2)
Quarter: 2019Q1

REPORT INFORMATION
  Report Type: Spontaneous
  Country: DE (occurrence: DE)
  Receive Date: 20190221
  Receipt Date: 20190227
  Transmission Date: 20190418
  Serious: Yes (Other)
  Sender: FDA-Public Use
  Company Number: DE-PFIZER INC-2019076239

PATIENT
  Age: 64 Year
  Sex: Male

DRUGS (12)
  1. SIROLIMUS. [Suspect]
     Active Substance: SIROLIMUS
     Indication: RASH PAPULAR
     Dosage: 2 MG, 1X/DAY
     Route: 048
  2. CLOBETASOL [Concomitant]
     Active Substance: CLOBETASOL
     Indication: LICHEN PLANUS
  3. ACITRETIN. [Concomitant]
     Active Substance: ACITRETIN
     Indication: LICHEN PLANUS
  4. PREDNISOLONE. [Concomitant]
     Active Substance: PREDNISOLONE
     Indication: LICHEN PLANUS
     Dosage: UNK (GRADUAL TAPER OVER THE COURSE OF EIGHT MONTHS)
  5. RITUXIMAB. [Concomitant]
     Active Substance: RITUXIMAB
     Indication: RASH PAPULAR
     Dosage: 375 MG/M2, MONTHLY
     Route: 042
  6. RITUXIMAB. [Concomitant]
     Active Substance: RITUXIMAB
     Indication: LICHEN PLANUS
  7. PREDNISOLONE. [Concomitant]
     Active Substance: PREDNISOLONE
     Indication: RASH PAPULAR
     Dosage: 1 MG/KG, UNK (SYSTEMIC)
     Route: 048
  8. CLOBETASOL [Concomitant]
     Active Substance: CLOBETASOL
     Indication: RASH PAPULAR
     Dosage: UNK
     Route: 061
  9. SIROLIMUS. [Suspect]
     Active Substance: SIROLIMUS
     Indication: LICHEN PLANUS
  10. METHOXSALEN. [Concomitant]
     Active Substance: METHOXSALEN
     Indication: RASH PAPULAR
     Dosage: 60 MG, UNK (PUVA THERAPY, FOUR TIMES WEEKLY FOR THREE WEEKS)
     Route: 048
  11. METHOXSALEN. [Concomitant]
     Active Substance: METHOXSALEN
     Indication: LICHEN PLANUS
  12. ACITRETIN. [Concomitant]
     Active Substance: ACITRETIN
     Indication: RASH PAPULAR
     Dosage: 50 MG, 1X/DAY (ONCE A DAY FOR ONE WEEK)
     Route: 048

REACTIONS (2)
  - Product use in unapproved indication [Unknown]
  - Cardiac failure [Unknown]
